FAERS Safety Report 8245484-6 (Version None)
Quarter: 2012Q1

REPORT INFORMATION
  Report Type: 
  Country: None (occurrence: None)
  Receive Date: 20120329
  Receipt Date: 20120320
  Transmission Date: 20120608
  Serious: Yes (Hospitalization)
  Sender: FDA-Public Use
  Company Number: ZA-ASTRAZENECA-2012SE19023

PATIENT
  Sex: Male

DRUGS (1)
  1. SYMBICORT [Suspect]
     Indication: ILL-DEFINED DISORDER
     Dosage: UNKNOWN FREQUENCY
     Route: 055

REACTIONS (2)
  - LOWER RESPIRATORY TRACT INFECTION [None]
  - DRUG DOSE OMISSION [None]
